FAERS Safety Report 9073591 (Version 1)
Quarter: 2013Q1

REPORT INFORMATION
  Report Type: Report from Study
  Country: US (occurrence: US)
  Receive Date: 20130129
  Receipt Date: 20130129
  Transmission Date: 20140127
  Serious: No
  Sender: FDA-Public Use
  Company Number: US-ABBOTT-12P-163-0932060-00

PATIENT
  Age: 36 Year
  Sex: Female

DRUGS (9)
  1. HUMIRA 40 MG/0.8 ML PEN [Suspect]
     Indication: COLITIS ULCERATIVE
     Dates: start: 20120401, end: 20120401
  2. HUMIRA 40 MG/0.8 ML PEN [Suspect]
     Dates: start: 20120414, end: 20120414
  3. HUMIRA 40 MG/0.8 ML PEN [Suspect]
     Dates: start: 20120428
  4. ASACOL [Concomitant]
     Indication: COLITIS ULCERATIVE
  5. GLYCOPYRROL [Concomitant]
     Indication: COLITIS ULCERATIVE
  6. AZATHIOPRINE [Concomitant]
     Indication: COLITIS ULCERATIVE
  7. ABILIFY [Concomitant]
     Indication: DEPRESSION
  8. CYMBALTA [Concomitant]
     Indication: DEPRESSION
  9. PRENATAL VITAMINS [Concomitant]
     Indication: PRODUCT USED FOR UNKNOWN INDICATION

REACTIONS (1)
  - Fatigue [Not Recovered/Not Resolved]
